FAERS Safety Report 5809151-8 (Version None)
Quarter: 2008Q3

REPORT INFORMATION
  Report Type: 
  Country: None (occurrence: None)
  Receive Date: 20080714
  Receipt Date: 20080710
  Transmission Date: 20090109
  Serious: Yes (Death, Life-Threatening)
  Sender: FDA-Public Use
  Company Number: JP-ASTRAZENECA-2008AP04552

PATIENT
  Age: 72 Year
  Sex: Male

DRUGS (4)
  1. OMEPRAL [Suspect]
     Indication: REFLUX OESOPHAGITIS
     Route: 048
     Dates: end: 20061207
  2. ROPION [Suspect]
     Indication: POSTOPERATIVE ANALGESIA
     Route: 041
     Dates: start: 20061205, end: 20061207
  3. ASPIRIN [Concomitant]
     Indication: ANGINA UNSTABLE
     Route: 048
     Dates: end: 20061207
  4. LOXONIN [Concomitant]
     Indication: POSTOPERATIVE ANALGESIA
     Route: 048
     Dates: end: 20061207

REACTIONS (2)
  - MULTI-ORGAN FAILURE [None]
  - TOXIC EPIDERMAL NECROLYSIS [None]
